FAERS Safety Report 11771631 (Version 1)
Quarter: 2015Q4

REPORT INFORMATION
  Report Type: Report from Study
  Country: ES (occurrence: ES)
  Receive Date: 20151124
  Receipt Date: 20151124
  Transmission Date: 20160304
  Serious: Yes (Other)
  Sender: FDA-Public Use
  Company Number: ES-SUN PHARMACEUTICAL INDUSTRIES LTD-2015RR-106348

PATIENT

DRUGS (3)
  1. CLOPIDOGREL [Suspect]
     Active Substance: CLOPIDOGREL BISULFATE
     Indication: HEPARIN-INDUCED THROMBOCYTOPENIA
     Route: 065
  2. FONDAPARINUX [Suspect]
     Active Substance: FONDAPARINUX
     Indication: HEPARIN-INDUCED THROMBOCYTOPENIA
     Dosage: 2.5 MG, DAILY
     Route: 065
  3. TIROFIBAN [Concomitant]
     Active Substance: TIROFIBAN
     Indication: PROPHYLAXIS
     Route: 065

REACTIONS (1)
  - Haemothorax [Recovered/Resolved]
